FAERS Safety Report 8477598-X (Version None)
Quarter: 2012Q2

REPORT INFORMATION
  Report Type: 
  Country: None (occurrence: None)
  Receive Date: 20120620
  Receipt Date: 20120614
  Transmission Date: 20120825
  Serious: Yes (Death)
  Sender: FDA-Public Use
  Company Number: DSA_57927_2012

PATIENT
  Sex: Female

DRUGS (1)
  1. XENAZINE [Suspect]
     Indication: HUNTINGTON'S DISEASE
     Dosage: (2 TABLETS IN THE MORNNIG, 2 TABLETS IN THE AFTERNOON AND 1 TABLET AT NIGHT ORAL)
     Route: 048
     Dates: start: 20091001

REACTIONS (1)
  - DEATH [None]
